APPROVED DRUG PRODUCT: METAPROTERENOL SULFATE
Active Ingredient: METAPROTERENOL SULFATE
Strength: 10MG
Dosage Form/Route: TABLET;ORAL
Application: A072519 | Product #001
Applicant: HERITAGE PHARMA LABS INC
Approved: Mar 30, 1990 | RLD: No | RS: No | Type: DISCN